FAERS Safety Report 7405857-8 (Version None)
Quarter: 2011Q2

REPORT INFORMATION
  Report Type: 
  Country: None (occurrence: None)
  Receive Date: 20110411
  Receipt Date: 20110329
  Transmission Date: 20111010
  Serious: Yes (Hospitalization)
  Sender: FDA-Public Use
  Company Number: US-ACTELION-A-US2011-45560

PATIENT

DRUGS (4)
  1. CALCIUM CHANNEL BLOCKERS [Concomitant]
  2. TRACLEER [Suspect]
     Indication: PULMONARY ARTERIAL HYPERTENSION
     Dosage: UNK
     Route: 048
     Dates: start: 20110207
  3. REVATIO [Concomitant]
  4. COUMADIN [Concomitant]

REACTIONS (6)
  - CANDIDIASIS [None]
  - PLEURAL EFFUSION [None]
  - DIZZINESS [None]
  - PYREXIA [None]
  - INFLUENZA LIKE ILLNESS [None]
  - SEPSIS [None]
